FAERS Safety Report 22206409 (Version 1)
Quarter: 2023Q2

REPORT INFORMATION
  Report Type: Other
  Country: AU (occurrence: None)
  Receive Date: 20230413
  Receipt Date: 20230413
  Transmission Date: 20230722
  Serious: Yes (Other)
  Sender: FDA-Public Use
  Company Number: AU-ROCHE-3328947

PATIENT

DRUGS (1)
  1. ADO-TRASTUZUMAB EMTANSINE [Suspect]
     Active Substance: ADO-TRASTUZUMAB EMTANSINE
     Indication: HER2 positive breast cancer
     Route: 065

REACTIONS (3)
  - Pulmonary toxicity [Unknown]
  - Drug interaction [Unknown]
  - Radiation pneumonitis [Unknown]
